FAERS Safety Report 4840377-6 (Version None)
Quarter: 2005Q4

REPORT INFORMATION
  Report Type: 
  Country: None (occurrence: None)
  Receive Date: 20051031
  Receipt Date: 20050613
  Transmission Date: 20060501
  Serious: Yes (Other)
  Sender: FDA-Public Use
  Company Number: PHBS2005US08396

PATIENT

DRUGS (6)
  1. LESCOL [Suspect]
  2. CRESTOR [Suspect]
     Dosage: ORAL
     Route: 048
  3. LIPITOR [Suspect]
  4. ZOCOR [Suspect]
  5. PRAVACHOL [Suspect]
  6. LOVASTATIN [Suspect]

REACTIONS (2)
  - BLOOD CREATINE PHOSPHOKINASE INCREASED [None]
  - MYALGIA [None]
